FAERS Safety Report 6706108-X (Version None)
Quarter: 2010Q2

REPORT INFORMATION
  Report Type: 
  Country: None (occurrence: None)
  Receive Date: 20100503
  Receipt Date: 20100423
  Transmission Date: 20101027
  Serious: Yes (Hospitalization, Other)
  Sender: FDA-Public Use
  Company Number: US-JNJFOC-20091001759

PATIENT
  Sex: Female
  Weight: 53.07 kg

DRUGS (16)
  1. FENTANYL CITRATE [Suspect]
     Indication: BACK PAIN
     Dosage: NDC # 0781-7111-55
     Route: 062
  2. OXYCONTIN [Concomitant]
     Indication: PAIN
     Dosage: 5/325 EVERY 6 HOURS AS NEEDED
     Route: 048
  3. LOTENSIN [Concomitant]
     Indication: CARDIAC DISORDER
     Dosage: HALF TABLET AT NIGHT
     Route: 048
  4. LOTENSIN [Concomitant]
     Dosage: ONE TABLET IN THE MORNING
     Route: 048
  5. LOTENSIN [Concomitant]
     Indication: BLOOD PRESSURE
     Dosage: ONE TABLET IN THE MORNING
     Route: 048
  6. LOTENSIN [Concomitant]
     Dosage: HALF TABLET AT NIGHT
     Route: 048
  7. SOTALOL HCL [Concomitant]
     Indication: CARDIAC DISORDER
     Dosage: ONE IN THE MORNING
     Route: 048
  8. SOTALOL HCL [Concomitant]
     Dosage: HALF TABLET AT NIGHT
     Route: 048
  9. PREMARIN [Concomitant]
     Indication: OESTROGEN THERAPY
     Dosage: 1 EVERY OTHER DAY
     Route: 048
  10. HYDROCHLOROTHIAZIDE [Concomitant]
     Indication: BLOOD PRESSURE
     Route: 048
  11. LANOXIN [Concomitant]
     Indication: CARDIAC DISORDER
     Route: 048
  12. CLONAZEPAM [Concomitant]
     Indication: SLEEP DISORDER
     Dosage: NIGHTLY
     Route: 048
  13. CLONAZEPAM [Concomitant]
     Indication: NEUROPATHY PERIPHERAL
     Dosage: NIGHTLY
     Route: 048
  14. POTASSIUM [Concomitant]
     Indication: MINERAL SUPPLEMENTATION
     Dosage: 10.0 MEQ 2 TABLETS IN THE MORNING
     Route: 048
  15. POTASSIUM [Concomitant]
     Dosage: 10.0 MEQ 1 TABLET IN THE EVENING
     Route: 048
  16. FOSAMAX [Concomitant]
     Indication: ARTHRITIS
     Route: 048

REACTIONS (7)
  - CARDIAC FAILURE CONGESTIVE [None]
  - CATARACT [None]
  - FATIGUE [None]
  - GASTROOESOPHAGEAL REFLUX DISEASE [None]
  - HEART RATE DECREASED [None]
  - NERVOUSNESS [None]
  - VISION BLURRED [None]
